FAERS Safety Report 8465635-8 (Version None)
Quarter: 2012Q2

REPORT INFORMATION
  Report Type: 
  Country: None (occurrence: None)
  Receive Date: 20120621
  Receipt Date: 20120621
  Transmission Date: 20120825
  Serious: Yes (Death, Hospitalization)
  Sender: FDA-Public Use
  Company Number: None

PATIENT
  Sex: Female
  Weight: 73 kg

DRUGS (2)
  1. AFINITOR [Suspect]
     Dosage: 140 MG
     Dates: start: 20111114
  2. SANDOSTATIN [Suspect]
     Dosage: 30 MG
     Dates: start: 20111108

REACTIONS (3)
  - BACK PAIN [None]
  - COMPRESSION FRACTURE [None]
  - PRODUCTIVE COUGH [None]
